FAERS Safety Report 4460214-1 (Version None)
Quarter: 2004Q3

REPORT INFORMATION
  Report Type: 
  Country: None (occurrence: None)
  Receive Date: 20040928
  Receipt Date: 20040130
  Transmission Date: 20050211
  Serious: No
  Sender: FDA-Public Use
  Company Number: US-GLAXOSMITHKLINE-A0495957A

PATIENT
  Age: 77 Year
  Sex: Male

DRUGS (15)
  1. SEREVENT [Suspect]
     Dosage: 1PAT TWICE PER DAY
     Route: 055
     Dates: start: 20040129
  2. PRINIVIL [Concomitant]
  3. NORVASC [Concomitant]
  4. PROSCAR [Concomitant]
  5. ZOCOR [Concomitant]
  6. HYDROCHLOROTHIAZIDE [Concomitant]
  7. OXYGEN [Concomitant]
  8. TEGRETOL [Concomitant]
  9. VITAMIN E [Concomitant]
  10. VITAMIN C [Concomitant]
  11. MULTIPLE VITAMIN [Concomitant]
  12. ASPIRIN [Concomitant]
  13. CHONDROITIN [Concomitant]
     Route: 065
  14. GLUCOSAMINE [Concomitant]
     Route: 065
  15. METHSUXIMIDE [Concomitant]
     Route: 065

REACTIONS (1)
  - BLOOD PRESSURE FLUCTUATION [None]
